FAERS Safety Report 5455009-6 (Version None)
Quarter: 2007Q3

REPORT INFORMATION
  Report Type: 
  Country: None (occurrence: None)
  Receive Date: 20070913
  Receipt Date: 20070828
  Transmission Date: 20080115
  Serious: Yes (Hospitalization, Disabling)
  Sender: FDA-Public Use
  Company Number: AZAFR200700327

PATIENT
  Age: 76 Year
  Sex: Female
  Weight: 62 kg

DRUGS (6)
  1. VIDAZA (AZACITIDNE) (INJECTION) [Suspect]
     Indication: ACUTE MYELOID LEUKAEMIA
     Dosage: 119.3 MG (119.3 MG, DAILY X 7 DAYS), INTRAVENOUS
     Route: 042
     Dates: start: 20070815, end: 20070821
  2. VALPROIC ACID [Suspect]
     Indication: ACUTE MYELOID LEUKAEMIA
     Dosage: 2 GM, DAILY, ORAL
     Route: 048
     Dates: start: 20070814, end: 20070820
  3. PROPRANOLOL [Concomitant]
  4. LEVOTHYROXINE SODIUM [Concomitant]
  5. DESLORATADINE [Concomitant]
  6. GINKGO BILOBA (GINKGO BILOBA) [Concomitant]

REACTIONS (1)
  - ENCEPHALOPATHY [None]
